FAERS Safety Report 23175073 (Version 4)
Quarter: 2025Q1

REPORT INFORMATION
  Report Type: Spontaneous
  Country: GB (occurrence: GB)
  Receive Date: 20231112
  Receipt Date: 20250106
  Transmission Date: 20250409
  Serious: No
  Sender: BIOGEN
  Company Number: GB-BIOGEN-2023BI01234871

PATIENT
  Sex: Male

DRUGS (1)
  1. TECFIDERA [Suspect]
     Active Substance: DIMETHYL FUMARATE
     Indication: Multiple sclerosis
     Dosage: MAINTENANCE DOSE
     Route: 050
     Dates: start: 2016

REACTIONS (4)
  - Visual impairment [Unknown]
  - Malaise [Unknown]
  - Asthenia [Unknown]
  - Product dose omission issue [Unknown]
